FAERS Safety Report 24093765 (Version 5)
Quarter: 2025Q1

REPORT INFORMATION
  Report Type: Report from Study
  Country: FR (occurrence: FR)
  Receive Date: 20240715
  Receipt Date: 20250306
  Transmission Date: 20250409
  Serious: Yes (Life-Threatening)
  Sender: PFIZER
  Company Number: FR-PFM-2024-03910

PATIENT
  Age: 70 Year
  Sex: Male
  Weight: 100 kg

DRUGS (26)
  1. ENCORAFENIB [Suspect]
     Active Substance: ENCORAFENIB
     Indication: Metastatic malignant melanoma
     Dosage: 450 MG, DAILY
     Route: 065
     Dates: start: 20231118, end: 20240220
  2. ENCORAFENIB [Suspect]
     Active Substance: ENCORAFENIB
     Dosage: 300 MG, DAILY
     Route: 065
     Dates: start: 20240323, end: 20241009
  3. BINIMETINIB [Suspect]
     Active Substance: BINIMETINIB
     Indication: Metastatic malignant melanoma
     Dosage: 90 MG, DAILY
     Route: 065
     Dates: start: 20231117, end: 20240220
  4. BINIMETINIB [Suspect]
     Active Substance: BINIMETINIB
     Dosage: 30 MG, DAILY
     Route: 065
     Dates: start: 20240323, end: 20241009
  5. LEVOTHYROXINE [Concomitant]
     Active Substance: LEVOTHYROXINE
     Indication: Hypothyroidism
     Dosage: 100 UG ONCE A DAY
     Route: 065
     Dates: start: 20231212, end: 20240220
  6. LEVOTHYROXINE [Concomitant]
     Active Substance: LEVOTHYROXINE
     Dosage: 125 UG, 1X/DAY
     Route: 065
     Dates: start: 20240221
  7. PRIMPERAN [Concomitant]
     Active Substance: METOCLOPRAMIDE HYDROCHLORIDE
     Indication: Nausea
     Dosage: 10 MG, TID (3/DAY) ( IF NEEDED)
     Route: 065
     Dates: start: 20231213
  8. IMODIUM [Concomitant]
     Active Substance: LOPERAMIDE HYDROCHLORIDE
     Indication: Diarrhoea
     Dosage: 2 MG, TID (3/DAY) (IF NEEDED)
     Route: 065
     Dates: start: 20231117
  9. CETIRIZINE [Concomitant]
     Active Substance: CETIRIZINE HYDROCHLORIDE
     Indication: Pruritus
     Dosage: 10 MG PER DAY (IF NEEDED)
     Route: 065
     Dates: start: 20231117
  10. AMIODARONE [Concomitant]
     Active Substance: AMIODARONE
     Indication: Myocardial ischaemia
     Route: 065
     Dates: start: 2011
  11. CORGARD [Concomitant]
     Active Substance: NADOLOL
     Indication: Cardiac disorder
     Route: 065
     Dates: start: 2011
  12. SPIRONOLACTONE [Concomitant]
     Active Substance: SPIRONOLACTONE
     Indication: Myocardial ischaemia
     Dosage: 25 MG, 1X/DAY
     Route: 065
     Dates: start: 2011
  13. ATORVASTATIN CALCIUM [Concomitant]
     Active Substance: ATORVASTATIN CALCIUM
     Indication: Hypolipidaemia
     Dosage: 80 MG, 1X/DAY
     Route: 065
     Dates: start: 2011
  14. ATORVASTATIN CALCIUM [Concomitant]
     Active Substance: ATORVASTATIN CALCIUM
     Indication: Hypercholesterolaemia
  15. PREDNISONE [Concomitant]
     Active Substance: PREDNISONE
     Indication: Antiinflammatory therapy
     Dosage: 5 MG, 1X/DAY
     Route: 065
     Dates: start: 202311, end: 20240925
  16. EYLEA [Concomitant]
     Active Substance: AFLIBERCEPT
     Indication: Neovascular age-related macular degeneration
     Route: 065
  17. EYLEA [Concomitant]
     Active Substance: AFLIBERCEPT
     Route: 065
  18. PERINDOPRIL + AMLODIPINA GENERIS [Concomitant]
     Indication: Cardiac disorder
     Route: 065
     Dates: start: 2011
  19. XARELTO [Concomitant]
     Active Substance: RIVAROXABAN
     Indication: Anticoagulant therapy
     Dosage: 15 MG ONCE A DAY
     Route: 065
     Dates: end: 20240906
  20. XARELTO [Concomitant]
     Active Substance: RIVAROXABAN
     Indication: Cardiac disorder
  21. INDAPAMIDE [Concomitant]
     Active Substance: INDAPAMIDE
     Indication: Hypertension
     Dosage: 1.5 MG, 1X/DAY
     Route: 065
     Dates: start: 2011
  22. INDAPAMIDE [Concomitant]
     Active Substance: INDAPAMIDE
     Indication: Cardiac disorder
  23. COVERAM [Concomitant]
     Active Substance: AMLODIPINE\PERINDOPRIL
     Indication: Hypertension
     Dosage: 10 MG, 1X/DAY
     Route: 065
  24. COVERAM [Concomitant]
     Active Substance: AMLODIPINE\PERINDOPRIL
     Indication: Cardiac disorder
  25. CORDARONE [Concomitant]
     Active Substance: AMIODARONE HYDROCHLORIDE
     Indication: Cardiac disorder
     Dosage: 200 MG, 1X/DAY
     Route: 065
  26. EZETIMIBE [Concomitant]
     Active Substance: EZETIMIBE
     Indication: Hypolipidaemia
     Dosage: 10 MG, 1X/DAY
     Route: 065

REACTIONS (1)
  - Aspartate aminotransferase increased [Recovered/Resolved]

NARRATIVE: CASE EVENT DATE: 20240216
